FAERS Safety Report 5561574-0 (Version None)
Quarter: 2007Q4

REPORT INFORMATION
  Report Type: 
  Country: None (occurrence: None)
  Receive Date: 20071215
  Receipt Date: 20071017
  Transmission Date: 20080405
  Serious: No
  Sender: FDA-Public Use
  Company Number: US-AMGEN-KDL244834

PATIENT
  Sex: Male
  Weight: 111.7 kg

DRUGS (5)
  1. ENBREL [Suspect]
     Indication: RHEUMATOID ARTHRITIS
     Route: 058
     Dates: start: 20070101
  2. METHOTREXATE [Concomitant]
     Route: 048
     Dates: start: 20060101
  3. FOLIC ACID [Concomitant]
     Route: 048
  4. TRAMADOL HCL [Concomitant]
  5. AVANDIA [Concomitant]

REACTIONS (8)
  - ANXIETY [None]
  - ARTHRALGIA [None]
  - DEPRESSION [None]
  - HYPERSENSITIVITY [None]
  - NASOPHARYNGITIS [None]
  - PAIN IN EXTREMITY [None]
  - PYREXIA [None]
  - UPPER RESPIRATORY TRACT INFECTION [None]
